FAERS Safety Report 7941912-1 (Version None)
Quarter: 2011Q4

REPORT INFORMATION
  Report Type: 
  Country: None (occurrence: None)
  Receive Date: 20111128
  Receipt Date: 20111114
  Transmission Date: 20120403
  Serious: No
  Sender: FDA-Public Use
  Company Number: US-B.I. PHARMACEUTICALS,INC./RIDGEFIELD-2011-BP-26222BP

PATIENT
  Age: 30 Year
  Sex: Male

DRUGS (2)
  1. TWYNSTA [Suspect]
     Indication: HYPERTENSION
     Route: 048
     Dates: start: 20110701
  2. NEXIUM [Concomitant]
     Indication: GASTROOESOPHAGEAL REFLUX DISEASE
     Dosage: 40 MG
     Route: 048

REACTIONS (4)
  - DISCOMFORT [None]
  - CHILLS [None]
  - OROPHARYNGEAL PAIN [None]
  - LYMPHADENOPATHY [None]
